FAERS Safety Report 5288851-5 (Version None)
Quarter: 2007Q2

REPORT INFORMATION
  Report Type: 
  Country: None (occurrence: None)
  Receive Date: 20070405
  Receipt Date: 20070329
  Transmission Date: 20071010
  Serious: Yes (Hospitalization)
  Sender: FDA-Public Use
  Company Number: US-MERCK-0703USA01044

PATIENT
  Sex: Male

DRUGS (5)
  1. SINGULAIR [Suspect]
     Route: 048
     Dates: start: 20010824, end: 20070304
  2. [THERAPY UNSPECIFIED] [Concomitant]
     Route: 065
  3. ZYRTEC [Concomitant]
     Route: 065
  4. NASONEX [Concomitant]
     Route: 065
  5. LEXAPRO [Concomitant]
     Route: 065

REACTIONS (3)
  - ALLERGIC GRANULOMATOUS ANGIITIS [None]
  - ASTHMA [None]
  - LUNG NEOPLASM [None]
